FAERS Safety Report 21938701 (Version 1)
Quarter: 2023Q1

REPORT INFORMATION
  Report Type: Report from Study
  Country: US (occurrence: US)
  Receive Date: 20230201
  Receipt Date: 20230201
  Transmission Date: 20230418
  Serious: Yes (Life-Threatening, Hospitalization, Other)
  Sender: FDA-Public Use
  Company Number: US-EXELIXIS-CABO-22048568

PATIENT
  Sex: Male

DRUGS (10)
  1. CABOMETYX [Suspect]
     Active Substance: CABOZANTINIB S-MALATE
     Indication: Renal cancer
     Dosage: 40 MG, QD
     Route: 048
     Dates: start: 20220124
  2. ALBUTEROL [Concomitant]
     Active Substance: ALBUTEROL
  3. BUDESONIDE [Concomitant]
     Active Substance: BUDESONIDE
  4. CARISOPRODOL [Concomitant]
     Active Substance: CARISOPRODOL
  5. LEVOXYL [Concomitant]
     Active Substance: LEVOTHYROXINE SODIUM
  6. LOSARTAN [Concomitant]
     Active Substance: LOSARTAN
  7. TAMSULOSIN [Concomitant]
     Active Substance: TAMSULOSIN
  8. TRAMADOL HCL [Concomitant]
     Active Substance: TRAMADOL HYDROCHLORIDE
  9. VENTOLIN HFA [Concomitant]
     Active Substance: ALBUTEROL SULFATE
  10. VITAMIN D [Concomitant]
     Active Substance: VITAMIN D NOS

REACTIONS (2)
  - Thrombosis [Not Recovered/Not Resolved]
  - Pulmonary embolism [Unknown]
